FAERS Safety Report 5104867-3 (Version None)
Quarter: 2006Q3

REPORT INFORMATION
  Report Type: 
  Country: None (occurrence: None)
  Receive Date: 20060914
  Receipt Date: 20060911
  Transmission Date: 20061208
  Serious: Yes (Other)
  Sender: FDA-Public Use
  Company Number: FR-GLAXOSMITHKLINE-B0437784A

PATIENT
  Age: 43 Year
  Sex: Female

DRUGS (1)
  1. ZELITREX [Suspect]
     Dosage: 500MG TWICE PER DAY
     Route: 048
     Dates: start: 20060908

REACTIONS (6)
  - ABDOMINAL PAIN [None]
  - DIARRHOEA [None]
  - GASTROENTERITIS [None]
  - HEADACHE [None]
  - MUSCLE SPASMS [None]
  - PYREXIA [None]
